FAERS Safety Report 18627246 (Version 2)
Quarter: 2022Q3

REPORT INFORMATION
  Report Type: Spontaneous
  Country: IT (occurrence: IT)
  Receive Date: 20201217
  Receipt Date: 20220713
  Transmission Date: 20221027
  Serious: Yes (Hospitalization, Other)
  Sender: FDA-Public Use
  Company Number: IT-GSKCCFEMEA-CASE-01103599_AE-38081

PATIENT

DRUGS (1)
  1. ZEJULA [Suspect]
     Active Substance: NIRAPARIB
     Dosage: 100 MG

REACTIONS (5)
  - Femur fracture [Unknown]
  - Fall [Unknown]
  - SARS-CoV-2 test positive [Unknown]
  - Asymptomatic COVID-19 [Unknown]
  - Labelled drug-drug interaction medication error [Unknown]
